FAERS Safety Report 22381120 (Version 1)
Quarter: 2023Q2

REPORT INFORMATION
  Report Type: Spontaneous
  Country: TR (occurrence: TR)
  Receive Date: 20230530
  Receipt Date: 20230530
  Transmission Date: 20230721
  Serious: Yes (Other)
  Sender: FDA-Public Use
  Company Number: TR-SUN PHARMACEUTICAL INDUSTRIES LTD-2023R1-391722

PATIENT
  Age: 83 Year
  Sex: Male

DRUGS (4)
  1. ACETAMINOPHEN\CODEINE PHOSPHATE [Suspect]
     Active Substance: ACETAMINOPHEN\CODEINE PHOSPHATE
     Indication: Herpes zoster
     Dosage: 300/30 MG 3 TIMES A DAY
     Route: 065
  2. NIMESULIDE [Suspect]
     Active Substance: NIMESULIDE
     Indication: Herpes zoster
     Dosage: 1 PERCENT
     Route: 061
  3. DEXKETOPROFEN [Suspect]
     Active Substance: DEXKETOPROFEN
     Indication: Herpes zoster
     Dosage: 25 MILLIGRAM, QD
     Route: 065
  4. LIDOCAINE [Suspect]
     Active Substance: LIDOCAINE
     Indication: Herpes zoster
     Dosage: 5 PERCENT, TID
     Route: 065

REACTIONS (1)
  - Drug ineffective [Unknown]
